FAERS Safety Report 7865795-3 (Version None)
Quarter: 2011Q4

REPORT INFORMATION
  Report Type: 
  Country: None (occurrence: None)
  Receive Date: 20111028
  Receipt Date: 20110225
  Transmission Date: 20120403
  Serious: No
  Sender: FDA-Public Use
  Company Number: US-GLAXOSMITHKLINE-A0915398A

PATIENT
  Age: 59 Year
  Sex: Female

DRUGS (8)
  1. LASIX [Concomitant]
  2. POTASSIUM [Concomitant]
  3. ADVAIR DISKUS 100/50 [Suspect]
     Indication: EMPHYSEMA
     Dosage: 1PUFF TWICE PER DAY
     Route: 055
     Dates: start: 20080101
  4. LISINOPRIL [Concomitant]
  5. MELOXICAM [Concomitant]
  6. AMLODIPINE [Concomitant]
  7. COMBIVENT [Concomitant]
  8. MULTI-VITAMIN [Concomitant]

REACTIONS (3)
  - INHALATION THERAPY [None]
  - PRODUCT QUALITY ISSUE [None]
  - DRUG INEFFECTIVE [None]
